FAERS Safety Report 7722275-3 (Version None)
Quarter: 2011Q3

REPORT INFORMATION
  Report Type: 
  Country: None (occurrence: None)
  Receive Date: 20110831
  Receipt Date: 20110823
  Transmission Date: 20111222
  Serious: Yes (Hospitalization, Other)
  Sender: FDA-Public Use
  Company Number: US-ELI_LILLY_AND_COMPANY-US201108007040

PATIENT
  Sex: Male

DRUGS (5)
  1. BYETTA [Suspect]
     Indication: TYPE 2 DIABETES MELLITUS
     Dosage: 5 UG, BID
     Route: 058
  2. BYETTA [Suspect]
     Dosage: 10 UG, BID
     Route: 058
  3. LEVEMIR [Concomitant]
     Indication: TYPE 2 DIABETES MELLITUS
     Dosage: 35 U, EACH EVENING
     Route: 058
  4. GLUCOTROL [Concomitant]
     Indication: TYPE 2 DIABETES MELLITUS
     Dosage: 10 MG, BID
     Route: 048
  5. GLUCOPHAGE [Concomitant]
     Indication: TYPE 2 DIABETES MELLITUS
     Dosage: 1000 MG, BID
     Route: 048

REACTIONS (9)
  - CARDIAC DISORDER [None]
  - ULTRASOUND SCAN ABNORMAL [None]
  - CORONARY ARTERY DISEASE [None]
  - COMMUNICATION DISORDER [None]
  - CARDIAC STRESS TEST ABNORMAL [None]
  - BLOOD GLUCOSE DECREASED [None]
  - OFF LABEL USE [None]
  - CHEST PAIN [None]
  - BLOOD GLUCOSE INCREASED [None]
